FAERS Safety Report 23465496 (Version 1)
Quarter: 2024Q1

REPORT INFORMATION
  Report Type: Report from Study
  Country: US (occurrence: US)
  Receive Date: 20240201
  Receipt Date: 20240201
  Transmission Date: 20240409
  Serious: Yes (Hospitalization, Other)
  Sender: FDA-Public Use
  Company Number: US-JAZZ PHARMACEUTICALS-2024-US-001750

PATIENT
  Sex: Female
  Weight: 11.5 kg

DRUGS (3)
  1. EPIDIOLEX [Suspect]
     Active Substance: CANNABIDIOL
     Indication: Infantile spasms
     Dosage: 1.2 MILLILITER, BID
     Route: 048
     Dates: start: 202307
  2. SABRIL [Concomitant]
     Active Substance: VIGABATRIN
     Indication: Product used for unknown indication
  3. VIGABATRIN [Concomitant]
     Active Substance: VIGABATRIN
     Indication: Product used for unknown indication

REACTIONS (9)
  - Pneumonia bacterial [Unknown]
  - Enterovirus infection [Unknown]
  - Rhinovirus infection [Unknown]
  - Urinary retention [Unknown]
  - Nasal congestion [Unknown]
  - Lacrimation increased [Unknown]
  - Fatigue [Unknown]
  - Secretion discharge [Unknown]
  - Off label use [Unknown]
